FAERS Safety Report 7153861-X (Version None)
Quarter: 2010Q4

REPORT INFORMATION
  Report Type: 
  Country: None (occurrence: None)
  Receive Date: 20101213
  Receipt Date: 20101108
  Transmission Date: 20110411
  Serious: No
  Sender: FDA-Public Use
  Company Number: US-ABBOTT-10P-163-0684390-00

PATIENT
  Sex: Female
  Weight: 81.72 kg

DRUGS (2)
  1. MERIDIA [Suspect]
     Indication: WEIGHT DECREASED
     Dates: start: 20100401
  2. MERIDIA [Suspect]
     Dates: start: 20101001

REACTIONS (1)
  - DRUG INEFFECTIVE [None]
